FAERS Safety Report 26040833 (Version 1)
Quarter: 2025Q4

REPORT INFORMATION
  Report Type: Spontaneous
  Country: US (occurrence: None)
  Receive Date: 20251113
  Receipt Date: 20251113
  Transmission Date: 20260118
  Serious: Yes (Hospitalization)
  Sender: FDA-CTU
  Company Number: None

PATIENT
  Age: 22 Year
  Sex: Male
  Weight: 70.3 kg

DRUGS (5)
  1. DEXAMETHASONE [Suspect]
     Active Substance: DEXAMETHASONE
     Dates: start: 20251005, end: 20251005
  2. DOXORUBICIN HYDROCHLORIDE [Suspect]
     Active Substance: DOXORUBICIN HYDROCHLORIDE
     Dates: start: 20250924, end: 20250924
  3. METHOTREXATE [Suspect]
     Active Substance: METHOTREXATE
     Dosage: OTHER FREQUENCY : IT METHOTREXATE ;?
     Dates: start: 20251001, end: 20251001
  4. ONCASPAR [Suspect]
     Active Substance: PEGASPARGASE
     Dosage: OTHER FREQUENCY : VXLD DAY 16 (10/9/2025)PEG OMITTED ;?
     Dates: start: 20250925, end: 20250925
  5. VINCRISTINE SULFATE [Suspect]
     Active Substance: VINCRISTINE SULFATE
     Dates: start: 20251001, end: 20251001

REACTIONS (1)
  - Pancreatitis [None]

NARRATIVE: CASE EVENT DATE: 20251006
